FAERS Safety Report 6676847-8 (Version None)
Quarter: 2010Q1

REPORT INFORMATION
  Report Type: 
  Country: None (occurrence: None)
  Receive Date: 20100331
  Receipt Date: 20100318
  Transmission Date: 20100710
  Serious: No
  Sender: FDA-Public Use
  Company Number: 2010-00347

PATIENT
  Age: 63 Year
  Sex: Male
  Weight: 94.3482 kg

DRUGS (5)
  1. ZICAM EXTREME CONGESTION NASAL GEL [Suspect]
     Dosage: 1 DOSE/DAY-2DOSES/2DAYS
     Dates: start: 20100314, end: 20100317
  2. ESTER C [Concomitant]
  3. VITAMINS B-12  AND E [Concomitant]
  4. ASPIRIN [Concomitant]
  5. SAW PAMETTO [Concomitant]

REACTIONS (4)
  - AGEUSIA [None]
  - ANOSMIA [None]
  - NASAL DISCOMFORT [None]
  - THROAT IRRITATION [None]
